FAERS Safety Report 9587634 (Version 1)
Quarter: 2013Q4

REPORT INFORMATION
  Report Type: Spontaneous
  Country: US (occurrence: US)
  Receive Date: 20131003
  Receipt Date: 20131003
  Transmission Date: 20140711
  Serious: Yes (Other)
  Sender: FDA-Public Use
  Company Number: US-COVIDIEN/TYCO HEALTHCARE/MALLINCKRODT-T201301410

PATIENT
  Age: 46 Year
  Sex: Female
  Weight: 56.69 kg

DRUGS (7)
  1. EXALGO EXTENDED RELEASE [Suspect]
     Indication: PAIN
     Dosage: 12 MG, QD
     Route: 048
     Dates: start: 20130319
  2. MORPHINE [Concomitant]
     Indication: PAIN
     Dosage: 60 MG, TID
  3. DILAUDID [Concomitant]
     Indication: PAIN
     Dosage: 4 MG, 5 TIMES DAILY
  4. RESTORIL                           /00393701/ [Concomitant]
     Indication: SLEEP DISORDER
     Dosage: UNK
  5. FLONASE [Concomitant]
     Indication: MULTIPLE ALLERGIES
     Dosage: UNK
  6. ZYRTEC [Concomitant]
     Indication: MULTIPLE ALLERGIES
     Dosage: UNK
  7. ALLERGY SHOTS [Concomitant]
     Indication: MULTIPLE ALLERGIES
     Dosage: 2 TIMES WEEKLY

REACTIONS (4)
  - Drug withdrawal syndrome [Not Recovered/Not Resolved]
  - Dehydration [Unknown]
  - Headache [Recovered/Resolved]
  - Pain [Not Recovered/Not Resolved]
